FAERS Safety Report 9830006 (Version 1)
Quarter: 2014Q1

REPORT INFORMATION
  Report Type: Spontaneous
  Country: DE (occurrence: DE)
  Receive Date: 20140120
  Receipt Date: 20140120
  Transmission Date: 20141002
  Serious: Yes (Other)
  Sender: FDA-Public Use
  Company Number: PHHY2014DE005292

PATIENT
  Age: 76 Year
  Sex: Female

DRUGS (2)
  1. AFINITOR [Suspect]
     Dosage: 10 MG, PER DAY
  2. AFINITOR [Suspect]
     Dosage: 5 MG, PER DAY
     Dates: start: 20140111

REACTIONS (4)
  - Upper limb fracture [Unknown]
  - Deep vein thrombosis [Unknown]
  - Local swelling [Unknown]
  - Stomatitis [Unknown]
